FAERS Safety Report 9370889 (Version 4)
Quarter: 2013Q3

REPORT INFORMATION
  Report Type: Report from Study
  Country: CO (occurrence: CO)
  Receive Date: 20130626
  Receipt Date: 20130729
  Transmission Date: 20140515
  Serious: Yes (Hospitalization)
  Sender: FDA-Public Use
  Company Number: CO-ROCHE-1241755

PATIENT
  Age: 56 Year
  Sex: Male

DRUGS (1)
  1. VALIXA [Suspect]
     Indication: INFECTION PROPHYLAXIS
     Route: 048
     Dates: start: 20130313

REACTIONS (2)
  - Mouth ulceration [Recovered/Resolved]
  - Transplant rejection [Recovered/Resolved]
